FAERS Safety Report 7837041-8 (Version None)
Quarter: 2011Q4

REPORT INFORMATION
  Report Type: 
  Country: None (occurrence: None)
  Receive Date: 20111024
  Receipt Date: 20110821
  Transmission Date: 20120403
  Serious: No
  Sender: FDA-Public Use
  Company Number: US-ABBOTT-11P-163-0848464-00

PATIENT
  Sex: Female

DRUGS (8)
  1. WELLBUTRIN [Concomitant]
     Indication: PRODUCT USED FOR UNKNOWN INDICATION
  2. STOOL SOFTENER [Concomitant]
     Indication: SUPPLEMENTATION THERAPY
  3. MULTI-VITAMIN [Concomitant]
     Indication: VITAMIN SUPPLEMENTATION
  4. LUPRON DEPOT [Suspect]
     Indication: ENDOMETRIOSIS
     Dosage: INITIAL DOSE
     Route: 030
     Dates: start: 20110719
  5. ASPIRIN [Concomitant]
     Indication: CEREBROVASCULAR ACCIDENT PROPHYLAXIS
  6. POTASSIUM [Concomitant]
     Indication: MINERAL SUPPLEMENTATION
  7. ASPIRIN [Concomitant]
     Indication: REHABILITATION THERAPY
     Dates: start: 20101101
  8. LEVOTHYROXINE SODIUM [Concomitant]
     Indication: HYPOTHYROIDISM

REACTIONS (1)
  - RASH [None]
